FAERS Safety Report 8414119-1 (Version None)
Quarter: 2012Q2

REPORT INFORMATION
  Report Type: 
  Country: None (occurrence: None)
  Receive Date: 20120323
  Receipt Date: 20110616
  Transmission Date: 20120825
  Serious: Yes (Hospitalization, Other)
  Sender: FDA-Public Use
  Company Number: 163-21880-11022136

PATIENT
  Age: 66 Year
  Sex: Female
  Weight: 90.9916 kg

DRUGS (18)
  1. REVLIMID [Suspect]
     Indication: MULTIPLE MYELOMA
     Dosage: 25 MG, DAILY FOR 21 DAYS 7 DAYS OFF, PO, 15 MG, DAILY FOR 21 DAYS, 7 DAYS OFF, PO
     Route: 048
     Dates: start: 20101110, end: 20110201
  2. REVLIMID [Suspect]
     Indication: MULTIPLE MYELOMA
     Dosage: 25 MG, DAILY FOR 21 DAYS 7 DAYS OFF, PO, 15 MG, DAILY FOR 21 DAYS, 7 DAYS OFF, PO
     Route: 048
     Dates: start: 20110616
  3. ASPIRIN [Concomitant]
  4. TRAZODONE HCL [Concomitant]
  5. VITAMIN B12 [Concomitant]
  6. TYLENOL PM (TYLENOL PM) [Concomitant]
  7. DECADRON [Concomitant]
  8. METHYLDOPA [Concomitant]
  9. FOSAMAX [Concomitant]
  10. EFFEXOR [Concomitant]
  11. HYDROCHLOROTHIAZIDE [Concomitant]
  12. LISINOPRIL [Concomitant]
  13. COMPAZINE [Concomitant]
  14. REVLIMID [Suspect]
  15. ASTELIN [Concomitant]
  16. OMEPRAZOLE [Concomitant]
  17. DETROL [Concomitant]
  18. CALCIUM CARBONATE [Concomitant]

REACTIONS (4)
  - SYNCOPE [None]
  - PANCYTOPENIA [None]
  - ENTEROCOLITIS INFECTIOUS [None]
  - GASTROINTESTINAL HAEMORRHAGE [None]
